FAERS Safety Report 5352019-4 (Version None)
Quarter: 2007Q2

REPORT INFORMATION
  Report Type: 
  Country: None (occurrence: None)
  Receive Date: 20070611
  Receipt Date: 20070531
  Transmission Date: 20071010
  Serious: Yes (Hospitalization, Other)
  Sender: FDA-Public Use
  Company Number: PHHO2007AU09382

PATIENT
  Age: 58 Year
  Sex: Male

DRUGS (1)
  1. CGP 57148B [Suspect]
     Indication: CHORDOMA
     Dosage: 600 MG, QD
     Route: 048
     Dates: start: 20070517, end: 20070530

REACTIONS (6)
  - DEHYDRATION [None]
  - ESCHERICHIA URINARY TRACT INFECTION [None]
  - NAUSEA [None]
  - ORAL INTAKE REDUCED [None]
  - RENAL IMPAIRMENT [None]
  - VOMITING [None]
